FAERS Safety Report 7072161-X (Version None)
Quarter: 2010Q4

REPORT INFORMATION
  Report Type: 
  Country: None (occurrence: None)
  Receive Date: 20101029
  Receipt Date: 20091210
  Transmission Date: 20110411
  Serious: No
  Sender: FDA-Public Use
  Company Number: A0834586A

PATIENT
  Sex: Female

DRUGS (5)
  1. ADVAIR DISKUS 100/50 [Suspect]
     Indication: BRONCHITIS
     Dosage: 1PUFF TWICE PER DAY
     Route: 055
     Dates: start: 20091207
  2. LIPITOR [Concomitant]
  3. LEVAQUIN [Concomitant]
  4. ASPIRIN [Concomitant]
  5. ANTIBIOTIC [Concomitant]
     Indication: BRONCHITIS

REACTIONS (1)
  - TONGUE ULCERATION [None]
